FAERS Safety Report 7376678-X (Version None)
Quarter: 2011Q1

REPORT INFORMATION
  Report Type: 
  Country: None (occurrence: None)
  Receive Date: 20110325
  Receipt Date: 20110321
  Transmission Date: 20110831
  Serious: Yes (Death, Hospitalization)
  Sender: FDA-Public Use
  Company Number: GB-AMGEN-GBRCT2011015106

PATIENT
  Age: 74 Year
  Sex: Female
  Weight: 53.9 kg

DRUGS (9)
  1. EPIRUBICIN [Concomitant]
     Indication: OESOPHAGEAL CARCINOMA
     Dosage: UNK
     Dates: start: 20110302, end: 20110309
  2. FERROUS SULFATE TAB [Concomitant]
     Dosage: UNK
     Dates: start: 19800101
  3. MESALAMINE [Concomitant]
     Dosage: UNK
     Dates: start: 19800101
  4. RANITIDINE [Concomitant]
     Dosage: UNK
     Dates: start: 19800101
  5. CALCICHEW [Concomitant]
     Dosage: UNK
     Dates: start: 20000101
  6. OXALIPLATIN [Concomitant]
     Indication: OESOPHAGEAL CARCINOMA
     Dosage: UNK
     Dates: start: 20110302, end: 20110309
  7. FOLIC ACID [Concomitant]
  8. PANITUMUMAB [Suspect]
     Indication: OESOPHAGEAL CARCINOMA
     Dosage: UNK
     Dates: start: 20110302, end: 20110309
  9. CAPECITABINE [Concomitant]
     Indication: OESOPHAGEAL CARCINOMA
     Dosage: UNK
     Dates: start: 20110302, end: 20110309

REACTIONS (1)
  - NEUTROPENIC SEPSIS [None]
